FAERS Safety Report 6867987-9 (Version None)
Quarter: 2010Q3

REPORT INFORMATION
  Report Type: 
  Country: None (occurrence: None)
  Receive Date: 20100722
  Receipt Date: 20080507
  Transmission Date: 20110219
  Serious: No
  Sender: FDA-Public Use
  Company Number: US-PFIZER INC-2008041250

PATIENT
  Sex: Female

DRUGS (4)
  1. CHANTIX [Suspect]
     Indication: SMOKING CESSATION THERAPY
     Route: 048
     Dates: start: 20080201, end: 20080505
  2. SYNTHROID [Concomitant]
  3. COZAAR [Concomitant]
  4. ALL OTHER THERAPEUTIC PRODUCTS [Concomitant]

REACTIONS (4)
  - LIP ULCERATION [None]
  - MOUTH ULCERATION [None]
  - TONGUE ULCERATION [None]
  - WRONG TECHNIQUE IN DRUG USAGE PROCESS [None]
